FAERS Safety Report 7012578-2 (Version None)
Quarter: 2010Q3

REPORT INFORMATION
  Report Type: 
  Country: None (occurrence: None)
  Receive Date: 20100924
  Receipt Date: 20100913
  Transmission Date: 20110219
  Serious: Yes (Hospitalization)
  Sender: FDA-Public Use
  Company Number: ES-CELGENEUS-144-21880-10052035

PATIENT
  Sex: Male
  Weight: 88 kg

DRUGS (14)
  1. REVLIMID [Suspect]
     Indication: MULTIPLE MYELOMA
     Route: 048
     Dates: start: 20100430, end: 20100513
  2. DEXAMETHASONE [Suspect]
     Indication: MULTIPLE MYELOMA
     Route: 048
     Dates: start: 20100430, end: 20100513
  3. OMEPRAZOLE [Concomitant]
     Indication: ANTACID THERAPY
     Route: 048
     Dates: start: 20000101
  4. BENESTAN [Concomitant]
     Route: 048
     Dates: start: 20000101
  5. FINASTERIDE [Concomitant]
     Route: 048
     Dates: start: 20000101
  6. PREDNISONE TAB [Concomitant]
     Indication: VASCULITIS
     Route: 048
     Dates: start: 20000101
  7. PREDNISONE TAB [Concomitant]
     Route: 048
     Dates: start: 20100519, end: 20100605
  8. DUPHALAC [Concomitant]
     Indication: CONSTIPATION
     Route: 048
     Dates: start: 20000101
  9. ENALAPRIL [Concomitant]
     Route: 048
     Dates: start: 20000101
  10. SINTROM [Concomitant]
     Indication: ANTICOAGULANT THERAPY
     Route: 048
     Dates: start: 20000101
  11. EBASTINE [Concomitant]
     Indication: PRURITUS
     Route: 048
     Dates: start: 20000101
  12. ACETAMINOPHEN [Concomitant]
     Indication: ANALGESIC THERAPY
     Route: 048
     Dates: start: 20000101
  13. TRAMADOL [Concomitant]
     Indication: ANALGESIC THERAPY
     Route: 048
     Dates: start: 20000101
  14. WARFARIN [Concomitant]
     Indication: VASCULITIS
     Route: 065

REACTIONS (3)
  - BRONCHOSPASM [None]
  - NEUTROPENIA [None]
  - PYREXIA [None]
